FAERS Safety Report 14065327 (Version 2)
Quarter: 2017Q4

REPORT INFORMATION
  Report Type: Spontaneous
  Country: US (occurrence: US)
  Receive Date: 20171009
  Receipt Date: 20171010
  Transmission Date: 20180321
  Serious: Yes (Life-Threatening, Other)
  Sender: FDA-Public Use
  Company Number: US-SA-2017SA191487

PATIENT
  Age: 64 Year
  Sex: Female

DRUGS (38)
  1. PLAQUENIL [Suspect]
     Active Substance: HYDROXYCHLOROQUINE SULFATE
     Indication: RHEUMATOID ARTHRITIS
     Route: 048
  2. CARVEDILOL. [Suspect]
     Active Substance: CARVEDILOL
     Indication: MITRAL VALVE DISEASE
     Route: 065
  3. OMALIZUMAB. [Suspect]
     Active Substance: OMALIZUMAB
     Indication: PROPHYLAXIS
     Route: 058
     Dates: start: 20140305
  4. OMALIZUMAB. [Suspect]
     Active Substance: OMALIZUMAB
     Indication: CHRONIC OBSTRUCTIVE PULMONARY DISEASE
     Route: 058
     Dates: start: 20140305
  5. OMALIZUMAB. [Suspect]
     Active Substance: OMALIZUMAB
     Indication: CHRONIC OBSTRUCTIVE PULMONARY DISEASE
     Dosage: 300 MG,1 IN 2 WK
     Route: 058
     Dates: start: 2012
  6. PRILOSEC [Concomitant]
     Active Substance: OMEPRAZOLE MAGNESIUM
  7. OMALIZUMAB. [Suspect]
     Active Substance: OMALIZUMAB
     Indication: SINUS DISORDER
     Route: 058
     Dates: start: 20140305
  8. OMALIZUMAB. [Suspect]
     Active Substance: OMALIZUMAB
     Indication: ASTHMA
     Route: 058
     Dates: start: 20140305
  9. OMALIZUMAB. [Suspect]
     Active Substance: OMALIZUMAB
     Indication: ASTHMA
     Dosage: START DATE: 07-JAN-2016
     Route: 058
     Dates: start: 201601, end: 201601
  10. OMALIZUMAB. [Suspect]
     Active Substance: OMALIZUMAB
     Indication: OBSTRUCTIVE AIRWAYS DISORDER
     Route: 058
     Dates: start: 20150921
  11. HYDROXYCHLOROQUINE [Concomitant]
     Active Substance: HYDROXYCHLOROQUINE
  12. SALBUTAMOL [Concomitant]
     Active Substance: ALBUTEROL
  13. OMALIZUMAB. [Suspect]
     Active Substance: OMALIZUMAB
     Indication: ASTHMA
     Dosage: 300 MG,1 IN 2 WK
     Route: 058
     Dates: start: 2012
  14. DIFLUCAN [Concomitant]
     Active Substance: FLUCONAZOLE
  15. XANAX [Concomitant]
     Active Substance: ALPRAZOLAM
  16. OMALIZUMAB. [Suspect]
     Active Substance: OMALIZUMAB
     Indication: OBSTRUCTIVE AIRWAYS DISORDER
     Dosage: START DATE: 07-JAN-2016
     Route: 058
     Dates: start: 201601, end: 201601
  17. LEFLUNOMIDE. [Concomitant]
     Active Substance: LEFLUNOMIDE
  18. LEVOTHYROXINE. [Concomitant]
     Active Substance: LEVOTHYROXINE
  19. OMALIZUMAB. [Suspect]
     Active Substance: OMALIZUMAB
     Indication: OBSTRUCTIVE AIRWAYS DISORDER
     Route: 058
     Dates: start: 20140305
  20. OMALIZUMAB. [Suspect]
     Active Substance: OMALIZUMAB
     Indication: SINUS DISORDER
     Dosage: START DATE: 07-JAN-2016
     Route: 058
     Dates: start: 201601, end: 201601
  21. OMALIZUMAB. [Suspect]
     Active Substance: OMALIZUMAB
     Indication: OBSTRUCTIVE AIRWAYS DISORDER
     Dosage: 300 MG,1 IN 2 WK
     Route: 058
     Dates: start: 2012
  22. PREDNISONE. [Suspect]
     Active Substance: PREDNISONE
     Indication: DIABETES MELLITUS
     Route: 065
  23. PREDNISONE. [Suspect]
     Active Substance: PREDNISONE
     Indication: RHEUMATOID ARTHRITIS
     Route: 065
  24. NAPROXEN. [Concomitant]
     Active Substance: NAPROXEN
  25. VENTOLIN [Concomitant]
     Active Substance: ALBUTEROL SULFATE
  26. VITAMIN D [Concomitant]
     Active Substance: CHOLECALCIFEROL
  27. OMALIZUMAB. [Suspect]
     Active Substance: OMALIZUMAB
     Indication: SINUS DISORDER
     Dosage: 300 MG,1 IN 2 WK
     Route: 058
     Dates: start: 2012
  28. CORTISONE [Concomitant]
     Active Substance: CORTISONE\HYDROCORTISONE
  29. ARAVA [Suspect]
     Active Substance: LEFLUNOMIDE
     Route: 048
  30. OMALIZUMAB. [Suspect]
     Active Substance: OMALIZUMAB
     Indication: PROPHYLAXIS
     Dosage: START DATE: 07-JAN-2016
     Route: 058
     Dates: start: 201601, end: 201601
  31. OMALIZUMAB. [Suspect]
     Active Substance: OMALIZUMAB
     Indication: CHRONIC OBSTRUCTIVE PULMONARY DISEASE
     Dosage: START DATE: 07-JAN-2016
     Route: 058
     Dates: start: 201601, end: 201601
  32. OMALIZUMAB. [Suspect]
     Active Substance: OMALIZUMAB
     Indication: PROPHYLAXIS
     Dosage: 300 MG,1 IN 2 WK
     Route: 058
     Dates: start: 2012
  33. OMALIZUMAB. [Suspect]
     Active Substance: OMALIZUMAB
     Indication: PROPHYLAXIS
     Route: 058
     Dates: start: 20150921
  34. OMALIZUMAB. [Suspect]
     Active Substance: OMALIZUMAB
     Indication: CHRONIC OBSTRUCTIVE PULMONARY DISEASE
     Route: 058
     Dates: start: 20150921
  35. OMALIZUMAB. [Suspect]
     Active Substance: OMALIZUMAB
     Indication: SINUS DISORDER
     Route: 058
     Dates: start: 20150921
  36. TIOTROPIUM BROMIDE [Concomitant]
     Active Substance: TIOTROPIUM BROMIDE
  37. OMALIZUMAB. [Suspect]
     Active Substance: OMALIZUMAB
     Indication: ASTHMA
     Route: 058
     Dates: start: 20150921
  38. LEXAPRO [Concomitant]
     Active Substance: ESCITALOPRAM OXALATE

REACTIONS (16)
  - Candida infection [Unknown]
  - Anxiety [Unknown]
  - Headache [Unknown]
  - Product use issue [Unknown]
  - Hypoglycaemia [Unknown]
  - Malaise [Unknown]
  - Hunger [Unknown]
  - Hand deformity [Unknown]
  - Haemorrhage [Unknown]
  - Chest discomfort [Unknown]
  - Sinus congestion [Recovered/Resolved]
  - Inflammation [Unknown]
  - Diabetes mellitus [Unknown]
  - Nodule [Unknown]
  - Rheumatoid arthritis [Recovered/Resolved with Sequelae]
  - Back pain [Unknown]
